FAERS Safety Report 7107414-X (Version None)
Quarter: 2010Q4

REPORT INFORMATION
  Report Type: 
  Country: None (occurrence: None)
  Receive Date: 20101111
  Receipt Date: 20101111
  Transmission Date: 20110411
  Serious: Yes (Hospitalization)
  Sender: FDA-Public Use
  Company Number: None

PATIENT
  Age: 75 Year
  Sex: Male
  Weight: 68.3 kg

DRUGS (1)
  1. ATORVASTATIN CALCIUM [Suspect]
     Indication: CORONARY ARTERY DISEASE
     Dosage: 80 MG EVERY DAY PO
     Route: 048
     Dates: start: 20080512, end: 20100730

REACTIONS (2)
  - MYALGIA [None]
  - RENAL FAILURE ACUTE [None]
